FAERS Safety Report 5504205-8 (Version None)
Quarter: 2007Q4

REPORT INFORMATION
  Report Type: 
  Country: None (occurrence: None)
  Receive Date: 20071101
  Receipt Date: 20071031
  Transmission Date: 20080405
  Serious: Yes (Death, Hospitalization)
  Sender: FDA-Public Use
  Company Number: B0493293A

PATIENT
  Age: 73 Year
  Sex: Female

DRUGS (1)
  1. ARIXTRA [Suspect]
     Indication: PULMONARY EMBOLISM
     Dosage: 7.5MG PER DAY
     Route: 058
     Dates: start: 20070701

REACTIONS (7)
  - ALTERED STATE OF CONSCIOUSNESS [None]
  - ARTHRALGIA [None]
  - BRAIN HERNIATION [None]
  - CEREBRAL HAEMATOMA [None]
  - JOINT SWELLING [None]
  - MYDRIASIS [None]
  - VOMITING [None]
